FAERS Safety Report 9596481 (Version 1)
Quarter: 2013Q4

REPORT INFORMATION
  Report Type: Spontaneous
  Country: US (occurrence: US)
  Receive Date: 20131004
  Receipt Date: 20131004
  Transmission Date: 20140711
  Serious: No
  Sender: FDA-Public Use
  Company Number: US-PFIZER INC-2013282631

PATIENT
  Age: 71 Year
  Sex: Male
  Weight: 77.1 kg

DRUGS (7)
  1. LYRICA [Suspect]
     Indication: SCIATIC NERVE NEUROPATHY
     Dosage: 100 MG, 3X/DAY
     Route: 048
     Dates: start: 20130615
  2. PLAVIX [Concomitant]
     Dosage: 75 MG, UNK
  3. LISINOPRIL [Concomitant]
     Dosage: 10 MG, 1X/DAY
  4. FISH OIL [Concomitant]
     Dosage: UNK
  5. FIBER TABS [Concomitant]
     Dosage: UNK, 1X/DAY
  6. VITAMIN D3 [Concomitant]
     Dosage: UNK
  7. PERCOCET [Concomitant]
     Dosage: UNK, AS NEEDED

REACTIONS (1)
  - Drug effect decreased [Unknown]
